FAERS Safety Report 19518398 (Version 1)
Quarter: 2021Q3

REPORT INFORMATION
  Report Type: Spontaneous
  Country: US (occurrence: US)
  Receive Date: 20210709
  Receipt Date: 20210709
  Transmission Date: 20211014
  Serious: No
  Sender: FDA-Public Use
  Company Number: None

PATIENT
  Age: 68 Year
  Sex: Female
  Weight: 50.85 kg

DRUGS (20)
  1. PIQRAY [Suspect]
     Active Substance: ALPELISIB
     Indication: BREAST CANCER
     Route: 048
     Dates: start: 20200123, end: 20210709
  2. IBUPROFEN 100MG [Concomitant]
  3. OMEPRAZOLE 20MG [Concomitant]
     Active Substance: OMEPRAZOLE
  4. HYDROXYZINE [Concomitant]
     Active Substance: HYDROXYZINE HYDROCHLORIDE
  5. ZOFRAN [Concomitant]
     Active Substance: ONDANSETRON HYDROCHLORIDE
  6. CETIRIZINE [Concomitant]
     Active Substance: CETIRIZINE HYDROCHLORIDE
  7. REGLAN 5MG [Concomitant]
  8. TRAMADOL 50MG [Concomitant]
     Active Substance: TRAMADOL
  9. PEPTO?BISMOL 262MG [Concomitant]
  10. GABAPENTIN 300MG [Concomitant]
     Active Substance: GABAPENTIN
  11. ASPIRIN 325MG [Concomitant]
     Active Substance: ASPIRIN
  12. BISACODYL EC 5MG [Concomitant]
  13. ALDACTONE [Concomitant]
     Active Substance: SPIRONOLACTONE
  14. LACTULOSE 10GM/15ML [Concomitant]
  15. VITAMIN D 1.25MG [Concomitant]
  16. TAGAMET HB 200MG [Concomitant]
  17. MILK OF MAGNESIA [Concomitant]
     Active Substance: MAGNESIUM HYDROXIDE
  18. EXCEDRIN MIGRAINE 250?250?65MG [Concomitant]
  19. MULTIVITAMIN [Concomitant]
     Active Substance: VITAMINS
  20. CALTRATE WITH VITAMIN D [Concomitant]
     Active Substance: CALCIUM CARBONATE\CHOLECALCIFEROL

REACTIONS (1)
  - Disease progression [None]

NARRATIVE: CASE EVENT DATE: 20210709
